FAERS Safety Report 5127193-5 (Version None)
Quarter: 2006Q4

REPORT INFORMATION
  Report Type: 
  Country: None (occurrence: None)
  Receive Date: 20061013
  Receipt Date: 20061010
  Transmission Date: 20070319
  Serious: Yes (Death, Other)
  Sender: FDA-Public Use
  Company Number: FR-ROXANE LABORATORIES, INC-2006-BP-11797RO

PATIENT
  Age: 62 Year
  Sex: Male

DRUGS (4)
  1. CYCLOPHOSPHAMIDE [Suspect]
     Indication: PERSISTENT GENERALISED LYMPHADENOPATHY
     Dosage: 1 BOLUS QMONTH X 6 MONTHS
  2. PREDNISONE TAB [Suspect]
     Indication: PERSISTENT GENERALISED LYMPHADENOPATHY
     Dosage: 1 MG/KG/DAY
  3. PREDNISONE TAB [Suspect]
  4. PREDNISONE TAB [Suspect]

REACTIONS (8)
  - ACUTE FEBRILE NEUTROPHILIC DERMATOSIS [None]
  - ANAEMIA MACROCYTIC [None]
  - DRUG INEFFECTIVE [None]
  - MYELODYSPLASTIC SYNDROME [None]
  - RASH PUSTULAR [None]
  - SEPSIS [None]
  - STEROID WITHDRAWAL SYNDROME [None]
  - THROMBOCYTOPENIA [None]
